FAERS Safety Report 16487334 (Version 1)
Quarter: 2019Q3

REPORT INFORMATION
  Report Type: Spontaneous
  Country: US (occurrence: US)
  Receive Date: 20190626
  Receipt Date: 20190626
  Transmission Date: 20191004
  Serious: Yes (Hospitalization)
  Sender: FDA-Public Use
  Company Number: None

PATIENT
  Age: 51 Year
  Sex: Female

DRUGS (3)
  1. EXEMESTANE 25 MG DAILY [Concomitant]
     Dates: start: 20180227
  2. IBUPROFEN 1600 MG BID [Concomitant]
  3. PALBOCICLIB [Suspect]
     Active Substance: PALBOCICLIB
     Indication: BREAST CANCER METASTATIC
     Route: 048
     Dates: start: 20190129, end: 20190209

REACTIONS (12)
  - Acute kidney injury [None]
  - Transaminases increased [None]
  - Hepatic ischaemia [None]
  - Hepatic function abnormal [None]
  - Malignant neoplasm progression [None]
  - Anaemia [None]
  - Thrombocytopenia [None]
  - Dehydration [None]
  - Lactic acidosis [None]
  - Thrombotic microangiopathy [None]
  - Acute respiratory failure [None]
  - Multiple organ dysfunction syndrome [None]
